FAERS Safety Report 15013172 (Version 1)
Quarter: 2018Q2

REPORT INFORMATION
  Report Type: Report from Study
  Country: AR (occurrence: AR)
  Receive Date: 20180614
  Receipt Date: 20180614
  Transmission Date: 20180711
  Serious: Yes (Death)
  Sender: FDA-Public Use
  Company Number: AR-MYLANLABS-2018M1041071

PATIENT
  Age: 67 Year
  Sex: Female

DRUGS (1)
  1. METHOTREXATE. [Suspect]
     Active Substance: METHOTREXATE
     Indication: SYSTEMIC SCLERODERMA
     Dosage: 10 MG, QW
     Route: 065

REACTIONS (4)
  - Toxicity to various agents [Fatal]
  - Pancytopenia [Fatal]
  - Renal disorder [Fatal]
  - Stomatitis [Not Recovered/Not Resolved]
